FAERS Safety Report 4315458-6 (Version None)
Quarter: 2004Q1

REPORT INFORMATION
  Report Type: 
  Country: None (occurrence: None)
  Receive Date: 20040309
  Receipt Date: 20040226
  Transmission Date: 20041129
  Serious: Yes (Hospitalization)
  Sender: FDA-Public Use
  Company Number: US044596

PATIENT
  Age: 68 Year
  Sex: Female
  Weight: 55.34 kg

DRUGS (8)
  1. ENBREL [Suspect]
     Indication: RHEUMATOID ARTHRITIS
     Dosage: 25 MG, TWICE WEEKLY, SC
     Route: 058
     Dates: start: 20021223, end: 20030701
  2. CAPTOPRIL [Concomitant]
  3. ALENDRONATE SODIUM [Concomitant]
  4. LEVOTHYROXINE SODIUM [Concomitant]
  5. PREDNISONE [Concomitant]
  6. ASPIRIN [Concomitant]
  7. SUCRALFATE [Concomitant]
  8. VICODIN [Concomitant]

REACTIONS (2)
  - PHAEOCHROMOCYTOMA [None]
  - RENAL HAEMORRHAGE [None]
